FAERS Safety Report 5406296-1 (Version None)
Quarter: 2007Q3

REPORT INFORMATION
  Report Type: 
  Country: None (occurrence: None)
  Receive Date: 20070806
  Receipt Date: 20070730
  Transmission Date: 20080115
  Serious: Yes (Hospitalization)
  Sender: FDA-Public Use
  Company Number: US-ASTRAZENECA-2007UW18234

PATIENT
  Age: 652 Month
  Sex: Male
  Weight: 104.5 kg

DRUGS (11)
  1. SEROQUEL [Suspect]
     Indication: SCHIZOPHRENIA
     Route: 048
     Dates: start: 20070606, end: 20070606
  2. SEROQUEL [Suspect]
     Route: 048
     Dates: start: 20070607, end: 20070607
  3. SEROQUEL [Suspect]
     Route: 048
     Dates: start: 20070608, end: 20070608
  4. SEROQUEL [Suspect]
     Route: 048
     Dates: start: 20070609, end: 20070609
  5. SEROQUEL [Suspect]
     Route: 048
     Dates: start: 20070610, end: 20070708
  6. METFORMIN HCL [Concomitant]
     Dates: start: 20061101
  7. LEVOTHYROXINE SODIUM [Concomitant]
     Dates: start: 19990101
  8. VITAMIN CAP [Concomitant]
     Dates: start: 20061101
  9. PROTEIN POWDER [Concomitant]
     Dates: start: 20061101
  10. FISH OIL [Concomitant]
     Dates: start: 20061101
  11. IBUPROFEN [Concomitant]
     Dosage: AS NEEDED
     Dates: start: 19960101

REACTIONS (1)
  - CHOLELITHIASIS [None]
